FAERS Safety Report 23206154 (Version 2)
Quarter: 2024Q1

REPORT INFORMATION
  Report Type: Report from Study
  Country: US (occurrence: US)
  Receive Date: 20231120
  Receipt Date: 20240223
  Transmission Date: 20240409
  Serious: Yes (Other)
  Sender: FDA-Public Use
  Company Number: US-AstraZeneca-CH-00505628A

PATIENT
  Sex: Female

DRUGS (1)
  1. ULTOMIRIS [Suspect]
     Active Substance: RAVULIZUMAB-CWVZ
     Indication: Atypical haemolytic uraemic syndrome
     Dosage: UNK
     Route: 042

REACTIONS (6)
  - Dementia Alzheimer^s type [Unknown]
  - Platelet count decreased [Unknown]
  - Throat tightness [Unknown]
  - Blood magnesium decreased [Unknown]
  - Cutis laxa [Unknown]
  - Dysphonia [Unknown]
